FAERS Safety Report 6531929-6 (Version None)
Quarter: 2010Q1

REPORT INFORMATION
  Report Type: 
  Country: None (occurrence: None)
  Receive Date: 20100108
  Receipt Date: 20100106
  Transmission Date: 20100710
  Serious: Yes (Death, Other)
  Sender: FDA-Public Use
  Company Number: AT-JNJFOC-20100101384

PATIENT
  Age: 81 Year
  Sex: Male

DRUGS (2)
  1. HALOPERIDOL [Suspect]
     Indication: PSYCHOTIC DISORDER
     Route: 065
  2. FLUPENTIXOL [Suspect]
     Indication: PSYCHOTIC DISORDER
     Route: 065

REACTIONS (2)
  - BRONCHOPNEUMONIA [None]
  - CHRONIC OBSTRUCTIVE PULMONARY DISEASE [None]
